FAERS Safety Report 8214777-0 (Version None)
Quarter: 2012Q1

REPORT INFORMATION
  Report Type: 
  Country: None (occurrence: None)
  Receive Date: 20120313
  Receipt Date: 20120228
  Transmission Date: 20120608
  Serious: Yes (Congenital Anomaly)
  Sender: FDA-Public Use
  Company Number: VALP20120007

PATIENT

DRUGS (3)
  1. PHENYTOIN [Suspect]
     Indication: MATERNAL EXPOSURE DURING PREGNANCY
     Dosage: 200 MG,M TRANSPLACENTAL
     Route: 064
  2. VALPROIC ACID [Suspect]
     Indication: MATERNAL EXPOSURE DURING PREGNANCY
     Dosage: 500 MG TRANSPLACENTAL
     Route: 064
  3. CARBAMAZEPINE [Suspect]
     Indication: MATERNAL EXPOSURE DURING PREGNANCY
     Dosage: 400 MG TRANSPLACENTAL
     Route: 064

REACTIONS (4)
  - CRYPTORCHISM [None]
  - RENAL APLASIA [None]
  - MATERNAL DRUGS AFFECTING FOETUS [None]
  - KIDNEY MALFORMATION [None]
